FAERS Safety Report 8553433-6 (Version None)
Quarter: 2012Q3

REPORT INFORMATION
  Report Type: 
  Country: None (occurrence: None)
  Receive Date: 20120731
  Receipt Date: 20120724
  Transmission Date: 20120928
  Serious: Yes (Other)
  Sender: FDA-Public Use
  Company Number: PL-ROCHE-1092511

PATIENT
  Age: 60 Year
  Sex: Female

DRUGS (4)
  1. ENOXAPARIN SODIUM [Concomitant]
     Indication: THROMBOSIS
  2. VITAMIN D [Concomitant]
     Indication: OSTEOPOROSIS
  3. HEPARIN [Suspect]
     Indication: THROMBOSIS
  4. BONIVA [Suspect]
     Indication: OSTEOPOROSIS POSTMENOPAUSAL
     Dosage: DOSE REPORTED AS 3MG/3ML
     Route: 042
     Dates: start: 20120101

REACTIONS (1)
  - THROMBOSIS [None]
